FAERS Safety Report 7921311-9 (Version None)
Quarter: 2011Q4

REPORT INFORMATION
  Report Type: 
  Country: None (occurrence: None)
  Receive Date: 20111117
  Receipt Date: 20111107
  Transmission Date: 20120403
  Serious: Yes (Hospitalization)
  Sender: FDA-Public Use
  Company Number: US-BAYER-2011-046217

PATIENT
  Age: 38 Year
  Sex: Female
  Weight: 58.957 kg

DRUGS (6)
  1. MULTI-VITAMIN [Concomitant]
  2. YAZ [Suspect]
     Indication: CONTRACEPTION
     Dosage: UNK
     Dates: start: 20070301, end: 20100801
  3. VITAMIN E [Concomitant]
  4. PRILOSEC [Concomitant]
  5. YASMIN [Suspect]
     Indication: CONTRACEPTION
     Dosage: UNK
     Dates: start: 20040601, end: 20070301
  6. NSAID'S [Concomitant]
     Dosage: UNK UNK, PRN
     Dates: start: 20010101

REACTIONS (5)
  - INJURY [None]
  - PAIN [None]
  - ANXIETY [None]
  - EMOTIONAL DISTRESS [None]
  - CHOLECYSTITIS CHRONIC [None]
